FAERS Safety Report 9484501 (Version 1)
Quarter: 2013Q3

REPORT INFORMATION
  Report Type: Spontaneous
  Country: US (occurrence: US)
  Receive Date: 20130828
  Receipt Date: 20130828
  Transmission Date: 20140515
  Serious: Yes (Hospitalization)
  Sender: FDA-Public Use
  Company Number: US-AMGEN-KDL424367

PATIENT
  Age: 56 Year
  Sex: Female

DRUGS (3)
  1. ENBREL [Suspect]
     Indication: PSORIATIC ARTHROPATHY
     Dosage: 50 MG, QWK
     Route: 058
     Dates: start: 20030210
  2. ENBREL [Suspect]
     Indication: PSORIASIS
  3. REMICADE [Concomitant]

REACTIONS (6)
  - Breast cancer female [Recovered/Resolved]
  - Arthritis [Recovered/Resolved]
  - Skin exfoliation [Unknown]
  - Rash pruritic [Unknown]
  - Rash erythematous [Unknown]
  - Injection site bruising [Not Recovered/Not Resolved]
